FAERS Safety Report 7088612-0 (Version None)
Quarter: 2010Q4

REPORT INFORMATION
  Report Type: 
  Country: None (occurrence: None)
  Receive Date: 20101029
  Receipt Date: 20101014
  Transmission Date: 20110411
  Serious: Yes (Other)
  Sender: FDA-Public Use
  Company Number: AUR-APL-2010-02615

PATIENT
  Age: 53 Year
  Sex: Female
  Weight: 103.4201 kg

DRUGS (4)
  1. BENAZEPRIL [Suspect]
     Indication: PROPHYLAXIS
  2. METFORMIN HCL [Suspect]
     Indication: DIABETES MELLITUS
  3. LIPITOR [Suspect]
     Indication: BLOOD CHOLESTEROL INCREASED
     Dosage: 20MG, DAILY, ORAL
     Route: 048
     Dates: start: 20080301, end: 20100101
  4. ACIPHEX [Suspect]

REACTIONS (9)
  - ABASIA [None]
  - ARTHRALGIA [None]
  - ARTHRITIS [None]
  - DRUG INTERACTION [None]
  - INTERVERTEBRAL DISC PROTRUSION [None]
  - LOW DENSITY LIPOPROTEIN INCREASED [None]
  - MUSCULOSKELETAL STIFFNESS [None]
  - PAIN [None]
  - PAIN IN EXTREMITY [None]
